FAERS Safety Report 21763439 (Version 1)
Quarter: 2022Q4

REPORT INFORMATION
  Report Type: Spontaneous
  Country: NO (occurrence: NO)
  Receive Date: 20221221
  Receipt Date: 20221221
  Transmission Date: 20230112
  Serious: Yes (Hospitalization, Other)
  Sender: FDA-Public Use
  Company Number: None

PATIENT
  Age: 23 Year
  Sex: Female
  Weight: 112 kg

DRUGS (11)
  1. PALIPERIDONE PALMITATE [Suspect]
     Active Substance: PALIPERIDONE PALMITATE
     Indication: Schizophrenia
     Route: 030
     Dates: start: 202112
  2. PALIPERIDONE PALMITATE [Suspect]
     Active Substance: PALIPERIDONE PALMITATE
  3. PALIPERIDONE PALMITATE [Suspect]
     Active Substance: PALIPERIDONE PALMITATE
  4. ACETAMINOPHEN [Concomitant]
     Active Substance: ACETAMINOPHEN
     Indication: Pain
     Route: 065
  5. ERGOCALCIFEROL [Concomitant]
     Active Substance: ERGOCALCIFEROL
     Route: 065
  6. LIRAGLUTIDE [Concomitant]
     Active Substance: LIRAGLUTIDE
     Indication: Obesity
     Route: 065
     Dates: start: 2022
  7. NYCOPLUS MULTI [Concomitant]
     Route: 065
  8. WITHANIA SOMNIFERA ROOT [Concomitant]
     Active Substance: WITHANIA SOMNIFERA ROOT
     Indication: Product used for unknown indication
     Route: 065
  9. MIRENA [Concomitant]
     Active Substance: LEVONORGESTREL
     Indication: Contraception
     Route: 065
     Dates: start: 2022
  10. NEXIUM [Concomitant]
     Active Substance: ESOMEPRAZOLE MAGNESIUM
     Indication: Dyspepsia
     Route: 065
  11. IBUPROFEN [Concomitant]
     Active Substance: IBUPROFEN
     Indication: Pain
     Route: 065

REACTIONS (43)
  - Neuroleptic malignant syndrome [Recovering/Resolving]
  - Syncope [Recovered/Resolved]
  - Dystonia [Recovered/Resolved]
  - Depressed level of consciousness [Recovered/Resolved]
  - Akathisia [Recovering/Resolving]
  - Chest pain [Recovered/Resolved]
  - Suffocation feeling [Recovered/Resolved]
  - Dysarthria [Recovered/Resolved]
  - Somnolence [Recovering/Resolving]
  - Chest discomfort [Recovered/Resolved]
  - Lip swelling [Recovered/Resolved]
  - Vision blurred [Recovered/Resolved]
  - Decreased appetite [Recovering/Resolving]
  - Mouth swelling [Recovered/Resolved]
  - Loss of libido [Not Recovered/Not Resolved]
  - Diplopia [Recovered/Resolved]
  - Myalgia [Recovering/Resolving]
  - Epistaxis [Not Recovered/Not Resolved]
  - Nausea [Recovered/Resolved]
  - Confusional state [Recovered/Resolved]
  - Paraesthesia [Recovering/Resolving]
  - Dyspnoea [Recovered/Resolved]
  - Body temperature fluctuation [Recovered/Resolved]
  - Dyskinesia [Recovering/Resolving]
  - Fatigue [Recovering/Resolving]
  - Vomiting [Recovered/Resolved]
  - Sedation [Recovering/Resolving]
  - Sleep disorder [Recovering/Resolving]
  - Agitation [Recovering/Resolving]
  - Muscular weakness [Recovering/Resolving]
  - Swelling face [Recovered/Resolved]
  - Nasal congestion [Not Recovered/Not Resolved]
  - Restlessness [Recovering/Resolving]
  - Photophobia [Recovered/Resolved]
  - Restless legs syndrome [Recovered/Resolved]
  - Bone pain [Recovering/Resolving]
  - Fear of death [Recovered/Resolved]
  - Hypotension [Recovered/Resolved]
  - Tic [Recovered/Resolved]
  - Tachycardia [Recovered/Resolved]
  - Extrapyramidal disorder [Recovering/Resolving]
  - Hunger [Unknown]
  - Heart rate increased [Unknown]

NARRATIVE: CASE EVENT DATE: 20221128
